FAERS Safety Report 13910149 (Version 4)
Quarter: 2020Q2

REPORT INFORMATION
  Report Type: Spontaneous
  Country: JP (occurrence: JP)
  Receive Date: 20170828
  Receipt Date: 20200422
  Transmission Date: 20200713
  Serious: Yes (Death, Hospitalization)
  Sender: FDA-Public Use
  Company Number: JP-ELI_LILLY_AND_COMPANY-JP201708009973

PATIENT
  Age: 92 Year
  Sex: Female
  Weight: 44 kg

DRUGS (6)
  1. LOQOA [Concomitant]
     Dosage: UNK UNK, DAILY
     Route: 062
     Dates: start: 20170710, end: 20170822
  2. CEROCRAL [Concomitant]
     Active Substance: IFENPRODIL
     Dosage: 20 MG, TID
     Route: 048
     Dates: end: 20170822
  3. DULOXETINE HYDROCHLORIDE. [Suspect]
     Active Substance: DULOXETINE HYDROCHLORIDE
     Dosage: 40 MG, DAILY
     Route: 048
     Dates: start: 20170810, end: 20170822
  4. SENNOSIDE                          /00571901/ [Concomitant]
     Active Substance: SENNOSIDES A AND B
     Dosage: 24 MG, EACH EVENING
     Route: 048
     Dates: end: 20170822
  5. DULOXETINE HYDROCHLORIDE. [Suspect]
     Active Substance: DULOXETINE HYDROCHLORIDE
     Indication: OSTEOARTHRITIS
     Dosage: 20 MG, DAILY
     Route: 048
     Dates: start: 20170710, end: 20170809
  6. SUMILU [Concomitant]
     Active Substance: FELBINAC
     Dosage: UNK
     Route: 062
     Dates: end: 20170822

REACTIONS (3)
  - Drug-induced liver injury [Fatal]
  - Neuroleptic malignant syndrome [Fatal]
  - Multiple organ dysfunction syndrome [Fatal]

NARRATIVE: CASE EVENT DATE: 20170821
